FAERS Safety Report 4338839-3 (Version None)
Quarter: 2004Q2

REPORT INFORMATION
  Report Type: 
  Country: None (occurrence: None)
  Receive Date: 20040414
  Receipt Date: 20040224
  Transmission Date: 20050107
  Serious: Yes (Death, Life-Threatening, Disabling)
  Sender: FDA-Public Use
  Company Number: US-MERCK-0402USA01726

PATIENT
  Age: 48 Year
  Sex: Female
  Weight: 126 kg

DRUGS (19)
  1. ALBUTEROL SULFATE [Concomitant]
     Route: 065
  2. XANAX [Concomitant]
     Route: 065
     Dates: start: 19950101
  3. XANAX [Concomitant]
     Route: 065
     Dates: start: 19950101
  4. CLOZAPINE [Suspect]
     Indication: SCHIZOAFFECTIVE DISORDER
     Route: 048
     Dates: start: 19950101
  5. CLOZAPINE [Suspect]
     Route: 048
     Dates: start: 19950101
  6. CLOZAPINE [Suspect]
     Route: 065
     Dates: start: 19960101
  7. CLOZAPINE [Suspect]
     Indication: BIPOLAR DISORDER
     Route: 048
     Dates: start: 19950101
  8. CLOZAPINE [Suspect]
     Route: 048
     Dates: start: 19950101
  9. CLOZAPINE [Suspect]
     Route: 065
     Dates: start: 19960101
  10. DEPAKOTE [Concomitant]
     Route: 048
     Dates: start: 19980701
  11. ZETIA [Suspect]
     Indication: HYPERCHOLESTEROLAEMIA
     Route: 048
     Dates: start: 20031122, end: 20031203
  12. ZETIA [Suspect]
     Indication: LOW DENSITY LIPOPROTEIN INCREASED
     Route: 048
     Dates: start: 20031122, end: 20031203
  13. MONOPRIL [Concomitant]
     Route: 048
     Dates: start: 19991201
  14. LASIX [Concomitant]
     Route: 048
     Dates: start: 20011201
  15. GLUCOTROL [Concomitant]
     Route: 065
     Dates: start: 20010601
  16. ATARAX [Concomitant]
     Route: 065
  17. MICRO-K [Concomitant]
     Route: 048
     Dates: start: 20011201
  18. SEROQUEL [Concomitant]
     Indication: SCHIZOAFFECTIVE DISORDER
     Route: 048
     Dates: start: 20010109
  19. SEROQUEL [Concomitant]
     Route: 048
     Dates: start: 20010109

REACTIONS (5)
  - BACK PAIN [None]
  - DEATH [None]
  - HYPERCHOLESTEROLAEMIA [None]
  - LOW DENSITY LIPOPROTEIN INCREASED [None]
  - MUSCLE CRAMP [None]
